FAERS Safety Report 13604164 (Version 2)
Quarter: 2017Q2

REPORT INFORMATION
  Report Type: Report from Study
  Country: BR (occurrence: BR)
  Receive Date: 20170602
  Receipt Date: 20170608
  Transmission Date: 20170830
  Serious: Yes (Life-Threatening, Hospitalization)
  Sender: FDA-Public Use
  Company Number: BR-ROCHE-1891391

PATIENT
  Age: 32 Year
  Sex: Female
  Weight: 45 kg

DRUGS (16)
  1. BEVACIZUMAB [Suspect]
     Active Substance: BEVACIZUMAB
     Indication: CERVIX CANCER METASTATIC
     Dosage: MOST RECENT DOSE PRIOR TO THE EVENT: ON 26/JAN/2017, 03/MAY/2017
     Route: 042
     Dates: start: 20161117
  2. VONAU [Concomitant]
     Active Substance: ONDANSETRON HYDROCHLORIDE
     Route: 065
     Dates: start: 20170131
  3. OMEPRAZOLE. [Concomitant]
     Active Substance: OMEPRAZOLE
     Route: 065
     Dates: start: 20161117
  4. OMEPRAZOLE. [Concomitant]
     Active Substance: OMEPRAZOLE
     Route: 065
     Dates: start: 20161124
  5. CLOTRIMAZOL [Concomitant]
     Active Substance: CLOTRIMAZOLE
     Route: 065
     Dates: start: 20170530
  6. NAUSEDRON [Concomitant]
     Active Substance: ONDANSETRON HYDROCHLORIDE
     Route: 065
     Dates: start: 20170126, end: 20170126
  7. TYLEX (BRAZIL) [Concomitant]
     Active Substance: ACETAMINOPHEN\CODEINE PHOSPHATE
     Route: 065
     Dates: start: 20161124
  8. LUFTAL (BRAZIL) [Concomitant]
     Route: 065
     Dates: start: 20170104
  9. CARBOPLATIN. [Suspect]
     Active Substance: CARBOPLATIN
     Indication: CERVIX CANCER METASTATIC
     Dosage: MOST RECENT DOSE PRIOR TO THE EVENT: ON 26/JAN/2017, 03/MAY/2017
     Route: 042
     Dates: start: 20161117
  10. TROK [Concomitant]
     Indication: RASH
     Route: 065
     Dates: start: 20161128
  11. VONAU [Concomitant]
     Active Substance: ONDANSETRON HYDROCHLORIDE
     Indication: VOMITING
     Route: 065
     Dates: start: 20170128
  12. TYLEX (BRAZIL) [Concomitant]
     Active Substance: ACETAMINOPHEN\CODEINE PHOSPHATE
     Indication: HEADACHE
     Route: 065
     Dates: start: 20170109, end: 20170110
  13. PACLITAXEL. [Suspect]
     Active Substance: PACLITAXEL
     Indication: CERVIX CANCER METASTATIC
     Dosage: MOST RECENT DOSE PRIOR TO THE EVENT: ON 26/JAN/2017, 03/MAY/2017
     Route: 042
     Dates: start: 20161117
  14. TYLEX (BRAZIL) [Concomitant]
     Active Substance: ACETAMINOPHEN\CODEINE PHOSPHATE
     Indication: PAIN
     Route: 065
     Dates: start: 20170129, end: 20170129
  15. TYLEX (BRAZIL) [Concomitant]
     Active Substance: ACETAMINOPHEN\CODEINE PHOSPHATE
     Route: 065
     Dates: start: 20170201
  16. DECADRON [Concomitant]
     Active Substance: DEXAMETHASONE
     Route: 065
     Dates: start: 20170126, end: 20170126

REACTIONS (3)
  - Pancytopenia [Recovered/Resolved]
  - Anaemia [Recovered/Resolved]
  - Thrombocytopenia [Not Recovered/Not Resolved]

NARRATIVE: CASE EVENT DATE: 20170207
